FAERS Safety Report 16259592 (Version 1)
Quarter: 2019Q2

REPORT INFORMATION
  Report Type: Report from Study
  Country: US (occurrence: US)
  Receive Date: 20190501
  Receipt Date: 20190501
  Transmission Date: 20190711
  Serious: Yes (Other)
  Sender: FDA-Public Use
  Company Number: US-ROCHE-2309190

PATIENT
  Age: 51 Year
  Sex: Male
  Weight: 76.27 kg

DRUGS (3)
  1. OCREVUS [Suspect]
     Active Substance: OCRELIZUMAB
     Indication: SECONDARY PROGRESSIVE MULTIPLE SCLEROSIS
     Dosage: ONGOING:NO
     Route: 042
     Dates: start: 20181009
  2. OCREVUS [Suspect]
     Active Substance: OCRELIZUMAB
     Dosage: ONGOING:NO
     Route: 042
     Dates: start: 20181023
  3. OCREVUS [Suspect]
     Active Substance: OCRELIZUMAB
     Dosage: ONGOING:UNKNOWN
     Route: 042
     Dates: start: 20190410

REACTIONS (5)
  - Myalgia [Recovering/Resolving]
  - Contusion [Unknown]
  - Intentional product use issue [Unknown]
  - Off label use [Unknown]
  - Multiple sclerosis relapse [Recovered/Resolved]

NARRATIVE: CASE EVENT DATE: 20190413
